FAERS Safety Report 14214696 (Version 7)
Quarter: 2023Q1

REPORT INFORMATION
  Report Type: Spontaneous
  Country: US (occurrence: US)
  Receive Date: 20171122
  Receipt Date: 20230303
  Transmission Date: 20230418
  Serious: No
  Sender: FDA-Public Use
  Company Number: US-PFIZER INC-2017500309

PATIENT
  Age: 65 Year
  Sex: Male

DRUGS (3)
  1. INLYTA [Suspect]
     Active Substance: AXITINIB
     Indication: Renal cell carcinoma
     Dosage: 15 MG (15 MG AND AN UNKNOWN FREQUENCY (MIGHT HAD TO TAKE 3 PILLS))
     Route: 048
  2. INLYTA [Suspect]
     Active Substance: AXITINIB
     Dosage: 3 DF, DAILY (TAKE 3 (THREE) TABLETS EACH DAY BY MOUTH)
     Route: 048
  3. INLYTA [Suspect]
     Active Substance: AXITINIB
     Dosage: 5 MG, 3X/DAY (TAKE 3 (THREE) TABLETS EACH DAY BY MOUTH)
     Route: 048

REACTIONS (2)
  - Diarrhoea [Not Recovered/Not Resolved]
  - Anxiety [Unknown]

NARRATIVE: CASE EVENT DATE: 20160301
